FAERS Safety Report 18340023 (Version 2)
Quarter: 2020Q4

REPORT INFORMATION
  Report Type: Other
  Country: US (occurrence: US)
  Receive Date: 20201002
  Receipt Date: 20201102
  Transmission Date: 20210113
  Serious: No
  Sender: FDA-Public Use
  Company Number: US-AMAG PHARMACEUTICALS, INC.-AMAG202003036

PATIENT
  Age: 40 Year
  Sex: Female
  Weight: 73.55 kg

DRUGS (1)
  1. MAKENA [Suspect]
     Active Substance: HYDROXYPROGESTERONE CAPROATE
     Indication: PREMATURE DELIVERY
     Dosage: 250 MG/ML, WEEKLY
     Route: 058
     Dates: start: 20200708, end: 20200916

REACTIONS (10)
  - Underdose [Unknown]
  - Injection site pain [Unknown]
  - Injection site mass [Unknown]
  - Injection site swelling [Unknown]
  - Injection site pruritus [Unknown]
  - Product administration error [Unknown]
  - Localised infection [Unknown]
  - Injection site erythema [Unknown]
  - Injection site extravasation [Unknown]
  - Injection site warmth [Unknown]

NARRATIVE: CASE EVENT DATE: 20200826
